FAERS Safety Report 20822538 (Version 2)
Quarter: 2022Q2

REPORT INFORMATION
  Report Type: Spontaneous
  Country: CN (occurrence: CN)
  Receive Date: 20220512
  Receipt Date: 20220526
  Transmission Date: 20220720
  Serious: Yes (Hospitalization)
  Sender: FDA-Public Use
  Company Number: CN-TEVA-2022-CN-2034996

PATIENT
  Age: 83 Year
  Sex: Female
  Weight: 41.5 kg

DRUGS (5)
  1. CLOPIDOGREL [Suspect]
     Active Substance: CLOPIDOGREL BISULFATE
     Indication: Sinus arrest
     Dosage: 75 MILLIGRAM DAILY;
     Route: 065
  2. CLOPIDOGREL [Suspect]
     Active Substance: CLOPIDOGREL BISULFATE
     Indication: Atrial flutter
  3. ASPIRIN [Suspect]
     Active Substance: ASPIRIN
     Indication: Sinus arrest
     Dosage: 100 MILLIGRAM DAILY;
     Route: 065
  4. ASPIRIN [Suspect]
     Active Substance: ASPIRIN
     Indication: Atrial flutter
  5. HEPARIN [Suspect]
     Active Substance: HEPARIN SODIUM
     Indication: Anticoagulant therapy
     Dosage: DOSE: 50U/KG
     Route: 065

REACTIONS (3)
  - Pericardial effusion [Recovered/Resolved]
  - Cardiac tamponade [Recovered/Resolved]
  - Blood pressure decreased [Recovered/Resolved]
